FAERS Safety Report 9392281 (Version 7)
Quarter: 2014Q1

REPORT INFORMATION
  Report Type: Report from Study
  Country: CA (occurrence: CA)
  Receive Date: 20130710
  Receipt Date: 20140325
  Transmission Date: 20141002
  Serious: Yes (Other)
  Sender: FDA-Public Use
  Company Number: CA-ROCHE-1137491

PATIENT
  Age: 65 Year
  Sex: Female
  Weight: 35.64 kg

DRUGS (16)
  1. RITUXAN [Suspect]
     Indication: RHEUMATOID ARTHRITIS
     Dosage: FREQ: DAY 1 AND 15
     Route: 042
     Dates: start: 20120703
  2. RITUXAN [Suspect]
     Route: 065
     Dates: start: 20130130
  3. GRAVOL [Suspect]
     Indication: PRODUCT USED FOR UNKNOWN INDICATION
     Route: 065
  4. PREDNISONE [Suspect]
     Indication: PRODUCT USED FOR UNKNOWN INDICATION
     Dosage: OD
     Route: 065
  5. ELAVIL (CANADA) [Concomitant]
  6. RABEPRAZOLE [Concomitant]
  7. ROSUVASTATIN [Concomitant]
  8. IRBESARTAN [Concomitant]
  9. VENLAFAXINE [Concomitant]
  10. PREDNISONE [Concomitant]
  11. OXYCOCET [Concomitant]
  12. CRESTOR [Concomitant]
  13. DIPHENHYDRAMINE HCL [Concomitant]
     Indication: PREMEDICATION
     Route: 048
     Dates: start: 20120703
  14. ACETAMINOPHEN [Concomitant]
     Indication: PREMEDICATION
     Route: 048
     Dates: start: 20120703
  15. METHYLPREDNISOLON [Concomitant]
     Indication: PREMEDICATION
     Route: 042
     Dates: start: 20120703
  16. SERTRALINE [Concomitant]
     Dosage: OD
     Route: 065

REACTIONS (10)
  - Weight decreased [Not Recovered/Not Resolved]
  - Diabetes mellitus [Unknown]
  - Hypotension [Not Recovered/Not Resolved]
  - Musculoskeletal disorder [Unknown]
  - Abdominal pain [Unknown]
  - Pain [Unknown]
  - Gastric disorder [Not Recovered/Not Resolved]
  - Decreased appetite [Not Recovered/Not Resolved]
  - Anxiety [Unknown]
  - Arthralgia [Not Recovered/Not Resolved]
